FAERS Safety Report 8899714 (Version 1)
Quarter: 2012Q4

REPORT INFORMATION
  Report Type: 
  Country: US (occurrence: US)
  Receive Date: 20121108
  Receipt Date: 20121108
  Transmission Date: 20130627
  Serious: No
  Sender: FDA-Public Use
  Company Number: US-AMGEN-USASP2012026299

PATIENT
  Age: 46 Year
  Sex: Female
  Weight: 105.22 kg

DRUGS (12)
  1. ENBREL [Suspect]
     Indication: PRODUCT USED FOR UNKNOWN INDICATION
     Dosage: 50 mg, qwk
     Route: 058
  2. ARTHROTEC [Concomitant]
     Dosage: 75 mg, UNK
  3. LEFLUNOMIDE [Concomitant]
     Dosage: 20 mg, UNK
  4. CYCLOBENZAPRINE [Concomitant]
     Dosage: 10 mg, UNK
  5. HYDROXYCHLOROQUINE [Concomitant]
     Dosage: 200 mg, UNK
  6. ARGININE [Concomitant]
     Dosage: 500 mg, UNK
  7. CINNAMON                           /01647501/ [Concomitant]
     Dosage: 500 mg, UNK
  8. CALCIUM +VIT D [Concomitant]
     Dosage: 600 mg, UNK
  9. ALEVE [Concomitant]
     Dosage: 220 mg, UNK
  10. VITAMIN D /00107901/ [Concomitant]
     Dosage: UNK
  11. MELATONIN [Concomitant]
     Dosage: 1 mg, UNK
  12. OMEGA 3                            /01334101/ [Concomitant]
     Dosage: 1000 mg, UNK

REACTIONS (5)
  - Swelling [Unknown]
  - Muscle spasms [Unknown]
  - Nausea [Recovered/Resolved]
  - Headache [Recovered/Resolved]
  - Eye pain [Recovered/Resolved]
